FAERS Safety Report 6606660-9 (Version None)
Quarter: 2010Q1

REPORT INFORMATION
  Report Type: 
  Country: None (occurrence: None)
  Receive Date: 20100226
  Receipt Date: 20100218
  Transmission Date: 20100710
  Serious: Yes (Hospitalization, Other)
  Sender: FDA-Public Use
  Company Number: US-ABBOTT-10P-163-0627389-00

PATIENT
  Sex: Male
  Weight: 56.75 kg

DRUGS (4)
  1. HUMIRA [Suspect]
     Indication: CROHN'S DISEASE
     Route: 050
     Dates: start: 20090701, end: 20090801
  2. HUMIRA [Suspect]
     Route: 050
     Dates: start: 20090801
  3. HUMIRA [Suspect]
     Dates: start: 20100101
  4. DILAUDID [Concomitant]
     Indication: PAIN MANAGEMENT

REACTIONS (5)
  - COLONIC STENOSIS [None]
  - DRUG INEFFECTIVE [None]
  - INCISION SITE INFECTION [None]
  - INJECTION SITE PAIN [None]
  - PNEUMONIA [None]
